FAERS Safety Report 10087573 (Version 1)
Quarter: 2014Q2

REPORT INFORMATION
  Report Type: Spontaneous
  Country: US (occurrence: US)
  Receive Date: 20140418
  Receipt Date: 20140418
  Transmission Date: 20141212
  Serious: No
  Sender: FDA-Public Use
  Company Number: US-PURDUE-USA-2013-0108812

PATIENT
  Sex: Female

DRUGS (2)
  1. OXYCONTIN (NDA 22-272) [Suspect]
     Indication: PAIN
     Dosage: 80 MG, Q8H
     Route: 048
  2. BUTRANS [Suspect]
     Indication: PAIN
     Dosage: UNK, WEEKLY
     Route: 062

REACTIONS (2)
  - Pain [Unknown]
  - Drug withdrawal syndrome [Unknown]
